FAERS Safety Report 20687367 (Version 1)
Quarter: 2022Q2

REPORT INFORMATION
  Report Type: Report from Study
  Country: US (occurrence: US)
  Receive Date: 20220408
  Receipt Date: 20220408
  Transmission Date: 20220721
  Serious: Yes (Other)
  Sender: FDA-Public Use
  Company Number: US-ABBVIE-22K-163-4343727-00

PATIENT
  Age: 52 Year
  Sex: Male

DRUGS (4)
  1. SKYRIZI [Suspect]
     Active Substance: RISANKIZUMAB-RZAA
     Indication: Psoriasis
     Route: 058
  2. PFIZER-BIONTECH COVID-19 VACCINE [Concomitant]
     Active Substance: TOZINAMERAN
     Indication: COVID-19 immunisation
     Route: 030
     Dates: start: 20210414, end: 20210414
  3. PFIZER-BIONTECH COVID-19 VACCINE [Concomitant]
     Active Substance: TOZINAMERAN
     Route: 030
     Dates: start: 20210723, end: 20210723
  4. PFIZER-BIONTECH COVID-19 VACCINE [Concomitant]
     Active Substance: TOZINAMERAN
     Route: 030
     Dates: start: 20220108, end: 20220108

REACTIONS (8)
  - Internal haemorrhage [Not Recovered/Not Resolved]
  - White blood cell count decreased [Not Recovered/Not Resolved]
  - Hypothyroidism [Not Recovered/Not Resolved]
  - COVID-19 [Recovered/Resolved]
  - COVID-19 [Recovered/Resolved]
  - Red blood cell count decreased [Not Recovered/Not Resolved]
  - Platelet count decreased [Not Recovered/Not Resolved]
  - Blood iron decreased [Not Recovered/Not Resolved]

NARRATIVE: CASE EVENT DATE: 20210301
